FAERS Safety Report 5583441-9 (Version None)
Quarter: 2007Q4

REPORT INFORMATION
  Report Type: 
  Country: None (occurrence: None)
  Receive Date: 20071231
  Receipt Date: 20071221
  Transmission Date: 20080405
  Serious: Yes (Other)
  Sender: FDA-Public Use
  Company Number: S07-USA-06143-01

PATIENT
  Age: 7 Year
  Sex: Male

DRUGS (11)
  1. CELEXA [Suspect]
     Indication: ANXIETY
     Dosage: 5 MG QD PO
     Route: 048
     Dates: start: 20070301, end: 20071024
  2. CELEXA [Suspect]
     Indication: OBSESSIVE-COMPULSIVE DISORDER
     Dosage: 5 MG QD PO
     Route: 048
     Dates: start: 20070301, end: 20071024
  3. CELEXA [Suspect]
     Indication: ANXIETY
     Dosage: 10 MG QD PO
     Route: 048
     Dates: start: 20071025, end: 20070101
  4. CELEXA [Suspect]
     Indication: OBSESSIVE-COMPULSIVE DISORDER
     Dosage: 10 MG QD PO
     Route: 048
     Dates: start: 20071025, end: 20070101
  5. CELEXA [Suspect]
     Indication: ANXIETY
     Dates: start: 20070101, end: 20071121
  6. CELEXA [Suspect]
     Indication: OBSESSIVE-COMPULSIVE DISORDER
     Dates: start: 20070101, end: 20071121
  7. ADVAIR (FLUTICASONE) [Concomitant]
  8. SINGULAIR [Concomitant]
  9. ALBUTEROL [Concomitant]
  10. CLARINEX [Concomitant]
  11. PREVACID [Concomitant]

REACTIONS (6)
  - AGGRESSION [None]
  - DISINHIBITION [None]
  - IMPULSIVE BEHAVIOUR [None]
  - INTENTIONAL SELF-INJURY [None]
  - LIMB INJURY [None]
  - VIOLENCE-RELATED SYMPTOM [None]
